FAERS Safety Report 24454533 (Version 2)
Quarter: 2024Q4

REPORT INFORMATION
  Report Type: Spontaneous
  Country: US (occurrence: US)
  Receive Date: 20241017
  Receipt Date: 20241018
  Transmission Date: 20250115
  Serious: No
  Sender: ROCHE
  Company Number: US-ROCHE-3464289

PATIENT
  Age: 74 Year
  Sex: Male

DRUGS (2)
  1. RITUXIMAB [Suspect]
     Active Substance: RITUXIMAB
     Indication: Vasculitis
     Route: 065
  2. AVACOPAN [Concomitant]
     Active Substance: AVACOPAN

REACTIONS (4)
  - Oedema [Unknown]
  - Hypertension [Unknown]
  - Hyperglycaemia [Unknown]
  - Weight increased [Unknown]
